FAERS Safety Report 18887200 (Version 4)
Quarter: 2021Q3

REPORT INFORMATION
  Report Type: Report from Study
  Country: US (occurrence: US)
  Receive Date: 20210212
  Receipt Date: 20210818
  Transmission Date: 20211014
  Serious: Yes (Death, Other)
  Sender: FDA-Public Use
  Company Number: US-TAKEDA-2021TUS007592

PATIENT
  Sex: Female
  Weight: 63 kg

DRUGS (22)
  1. ACETAMINOPHEN. [Concomitant]
     Active Substance: ACETAMINOPHEN
  2. LIDOCAINE. [Concomitant]
     Active Substance: LIDOCAINE
  3. MAGNESIUM [Concomitant]
     Active Substance: MAGNESIUM
  4. FENTANYL. [Concomitant]
     Active Substance: FENTANYL
  5. PREDNISONE. [Concomitant]
     Active Substance: PREDNISONE
  6. HIBICLENS [Concomitant]
     Active Substance: CHLORHEXIDINE GLUCONATE
  7. SODIUM CHLORIDE. [Concomitant]
     Active Substance: SODIUM CHLORIDE
  8. AUGMENTIN [Concomitant]
     Active Substance: AMOXICILLIN\CLAVULANATE POTASSIUM
  9. EPINEPHRINE. [Concomitant]
     Active Substance: EPINEPHRINE
  10. VITAMINS NOS [Concomitant]
     Active Substance: VITAMINS
  11. DULCOLAX (BISACODYL) [Concomitant]
     Active Substance: BISACODYL
  12. CALCIUM [Concomitant]
     Active Substance: CALCIUM
  13. LEVOTHYROXINE. [Concomitant]
     Active Substance: LEVOTHYROXINE
  14. TUMS [Concomitant]
     Active Substance: CALCIUM CARBONATE
  15. REFRESH CELLUVISC [Concomitant]
     Active Substance: CARBOXYMETHYLCELLULOSE SODIUM
  16. DIPHENHYDRAMINE. [Concomitant]
     Active Substance: DIPHENHYDRAMINE
  17. AUGMENTINE [AMOXICILLIN;CLAVULANIC ACID] [Concomitant]
     Active Substance: AMOXICILLIN\CLAVULANIC ACID
  18. SIMVASTATIN. [Concomitant]
     Active Substance: SIMVASTATIN
  19. HYDROXYCHLOROQUINE [Concomitant]
     Active Substance: HYDROXYCHLOROQUINE
  20. ACETAMINOPHEN;OXYCODONE HYDROCHLORIDE [Concomitant]
     Active Substance: ACETAMINOPHEN\OXYCODONE HYDROCHLORIDE
  21. HUMAN NORMAL IMMUNOGLOBULIN; LIQUID [Suspect]
     Active Substance: HUMAN IMMUNOGLOBULIN G
     Indication: IMMUNODEFICIENCY COMMON VARIABLE
     Dosage: 70 GRAM, Q4WEEKS
     Route: 042
     Dates: start: 20190703
  22. TAMIFLU [Concomitant]
     Active Substance: OSELTAMIVIR PHOSPHATE

REACTIONS (4)
  - Urinary tract infection [Unknown]
  - Illness [Unknown]
  - Brain neoplasm [Fatal]
  - Sinusitis [Unknown]
